FAERS Safety Report 17291764 (Version 1)
Quarter: 2020Q1

REPORT INFORMATION
  Report Type: Spontaneous
  Country: US (occurrence: US)
  Receive Date: 20200121
  Receipt Date: 20200121
  Transmission Date: 20200409
  Serious: Yes (Other)
  Sender: FDA-Public Use
  Company Number: US-GLAXOSMITHKLINE-US2020AMR009715

PATIENT
  Age: 54 Year
  Sex: Female

DRUGS (2)
  1. IMURAN [Suspect]
     Active Substance: AZATHIOPRINE
     Indication: PRODUCT USED FOR UNKNOWN INDICATION
     Dosage: UNK
     Route: 065
  2. BENLYSTA [Suspect]
     Active Substance: BELIMUMAB
     Indication: SYSTEMIC LUPUS ERYTHEMATOSUS
     Dosage: UNK
     Route: 065
     Dates: end: 201612

REACTIONS (12)
  - Epstein-Barr virus associated lymphoma [Unknown]
  - Immunosuppression [Unknown]
  - Accident [Unknown]
  - Infection [Not Recovered/Not Resolved]
  - Pulmonary mass [Unknown]
  - Joint injury [Unknown]
  - Knee arthroplasty [Unknown]
  - Non-Hodgkin^s lymphoma stage III [Unknown]
  - Weight decreased [Unknown]
  - Coagulopathy [Unknown]
  - Adrenal mass [Unknown]
  - Decreased appetite [Unknown]

NARRATIVE: CASE EVENT DATE: 201612
